FAERS Safety Report 20534437 (Version 1)
Quarter: 2022Q1

REPORT INFORMATION
  Report Type: Report from Study
  Country: US (occurrence: US)
  Receive Date: 20220302
  Receipt Date: 20220302
  Transmission Date: 20220424
  Serious: Yes (Hospitalization)
  Sender: FDA-Public Use
  Company Number: US-ABBVIE-22K-163-4294780-00

PATIENT
  Age: 53 Year
  Sex: Female

DRUGS (1)
  1. VENCLEXTA [Suspect]
     Active Substance: VENETOCLAX
     Indication: Leukaemia
     Route: 048
     Dates: start: 202202

REACTIONS (3)
  - Platelet transfusion [Unknown]
  - Urinary tract infection bacterial [Unknown]
  - Dysuria [Unknown]

NARRATIVE: CASE EVENT DATE: 20220201
